FAERS Safety Report 19599856 (Version 1)
Quarter: 2021Q3

REPORT INFORMATION
  Report Type: Spontaneous
  Country: US (occurrence: US)
  Receive Date: 20210723
  Receipt Date: 20210723
  Transmission Date: 20211014
  Serious: Yes (Hospitalization, Disabling)
  Sender: FDA-Public Use
  Company Number: None

PATIENT
  Age: 67 Year
  Sex: Female
  Weight: 131 kg

DRUGS (1)
  1. APIXABAN [Suspect]
     Active Substance: APIXABAN
     Indication: PULMONARY EMBOLISM
     Route: 048
     Dates: start: 20210225, end: 20210425

REACTIONS (5)
  - Wound haemorrhage [None]
  - Ecchymosis [None]
  - Blister [None]
  - Necrosis [None]
  - Skin graft [None]

NARRATIVE: CASE EVENT DATE: 20210425
